FAERS Safety Report 10220290 (Version 1)
Quarter: 2014Q2

REPORT INFORMATION
  Report Type: Spontaneous
  Country: US (occurrence: US)
  Receive Date: 20140606
  Receipt Date: 20140606
  Transmission Date: 20141212
  Serious: Yes (Hospitalization)
  Sender: FDA-Public Use
  Company Number: US-ROCHE-1412657

PATIENT
  Sex: Male

DRUGS (3)
  1. PEG-INTERFERON ALFA 2A [Suspect]
     Indication: HEPATITIS C
     Route: 065
  2. RIBAVIRIN [Suspect]
     Indication: PRODUCT USED FOR UNKNOWN INDICATION
     Route: 065
  3. SOVALDI [Suspect]
     Indication: HEPATITIS C
     Route: 048

REACTIONS (8)
  - Tachycardia [Unknown]
  - Orthostatic hypotension [Unknown]
  - Dyspnoea [Unknown]
  - White blood cell count decreased [Unknown]
  - Fatigue [Unknown]
  - Malaise [Unknown]
  - Haematocrit decreased [Unknown]
  - Dizziness [Unknown]
